FAERS Safety Report 13027873 (Version 1)
Quarter: 2016Q4

REPORT INFORMATION
  Report Type: Spontaneous
  Country: IT (occurrence: IT)
  Receive Date: 20161214
  Receipt Date: 20161214
  Transmission Date: 20170207
  Serious: Yes (Other)
  Sender: FDA-Public Use
  Company Number: IT-BAYER-2016-231417

PATIENT
  Age: 73 Year
  Sex: Female

DRUGS (8)
  1. HYDROCHLOROTHIAZIDE W/ OLMESARTAN MEDOXOMIL [Suspect]
     Active Substance: HYDROCHLOROTHIAZIDE\OLMESARTAN MEDOXOMIL
  2. ZIMOX [AMOXICILLIN TRIHYDRATE] [Suspect]
     Active Substance: AMOXICILLIN
     Indication: DENTAL CARE
  3. ESKIM [Suspect]
     Active Substance: OMEGA-3 FATTY ACIDS
  4. SEREUPIN [Suspect]
     Active Substance: PAROXETINE HYDROCHLORIDE
  5. CARDIOASPIRIN 100 MG [Suspect]
     Active Substance: ASPIRIN
  6. CARDURA [Suspect]
     Active Substance: DOXAZOSIN MESYLATE
  7. METFORAL [Suspect]
     Active Substance: METFORMIN HYDROCHLORIDE
  8. TOTALIP [Suspect]
     Active Substance: ATORVASTATIN

REACTIONS (4)
  - Drug hypersensitivity [None]
  - Pruritus [Unknown]
  - Presyncope [Unknown]
  - Pain [Unknown]

NARRATIVE: CASE EVENT DATE: 20160127
